FAERS Safety Report 17390118 (Version 1)
Quarter: 2020Q1

REPORT INFORMATION
  Report Type: Report from Study
  Country: JP (occurrence: JP)
  Receive Date: 20200205
  Receipt Date: 20200205
  Transmission Date: 20200409
  Serious: Yes (Other)
  Sender: FDA-Public Use
  Company Number: JP-GLAXOSMITHKLINE-JP2019JPN119542

PATIENT

DRUGS (3)
  1. PREDONINE [Suspect]
     Active Substance: PREDNISOLONE
     Indication: ASTHMA
     Dosage: 10 MG, 1D
     Route: 048
     Dates: start: 20150420
  2. FLUTICASONE FUROATE + VILANTEROL TRIFENATATE [Suspect]
     Active Substance: FLUTICASONE FUROATE\VILANTEROL TRIFENATATE
     Indication: ASTHMA
     Dosage: 200 ?G, QD
     Route: 055
     Dates: start: 20171129
  3. PREDONINE [Suspect]
     Active Substance: PREDNISOLONE
     Dosage: 5 MG, UNK
     Route: 048

REACTIONS (2)
  - Interstitial lung disease [Recovering/Resolving]
  - Infection [Unknown]

NARRATIVE: CASE EVENT DATE: 20180117
